FAERS Safety Report 18862819 (Version 5)
Quarter: 2022Q1

REPORT INFORMATION
  Report Type: Other
  Country: US (occurrence: None)
  Receive Date: 20210208
  Receipt Date: 20220224
  Transmission Date: 20220423
  Serious: Yes (Other)
  Sender: FDA-Public Use
  Company Number: US-ROCHE-2758208

PATIENT
  Age: 38 Year
  Sex: Female
  Weight: 64.922 kg

DRUGS (23)
  1. OCREVUS [Suspect]
     Active Substance: OCRELIZUMAB
     Indication: Relapsing-remitting multiple sclerosis
     Dosage: DATE OF TREATMENT 02/NOV/ 2018, 30/MAY/2018, 01/JUN/2019, 1/JUN/2019, 05/JUN/2020, 07/DEC/2020
     Route: 042
     Dates: start: 20171101
  2. TECFIDERA [Concomitant]
     Active Substance: DIMETHYL FUMARATE
  3. BENADRYL [Concomitant]
     Active Substance: DIPHENHYDRAMINE HYDROCHLORIDE
  4. SOLU-MEDROL [Concomitant]
     Active Substance: METHYLPREDNISOLONE SODIUM SUCCINATE
  5. BACLOFEN [Concomitant]
     Active Substance: BACLOFEN
     Indication: Pain
     Dates: start: 20200721
  6. RESTASIS [Concomitant]
     Active Substance: CYCLOSPORINE
     Dosage: DROP IN BOTH EYE
  7. AMBIEN [Concomitant]
     Active Substance: ZOLPIDEM TARTRATE
     Indication: Insomnia
     Dosage: TAKE ONE TABLET  BY MOUTH NIGHTLY AS NEEDED
  8. ANUSOL HC [Concomitant]
     Active Substance: HYDROCORTISONE
     Indication: Pruritus
  9. ESTRACE [Concomitant]
     Active Substance: ESTRADIOL
  10. IMITREX [Concomitant]
     Active Substance: SUMATRIPTAN SUCCINATE
  11. PHENERGAN [Concomitant]
     Active Substance: PROMETHAZINE HYDROCHLORIDE
     Indication: Nausea
  12. PHENERGAN [Concomitant]
     Active Substance: PROMETHAZINE HYDROCHLORIDE
     Indication: Vomiting
  13. TORADOL [Concomitant]
     Active Substance: KETOROLAC TROMETHAMINE
     Indication: Pain
  14. PROVIGIL [Concomitant]
     Active Substance: MODAFINIL
  15. GABAPENTIN [Concomitant]
     Active Substance: GABAPENTIN
     Dosage: 1 CAPSULE BY MOUTH
     Route: 048
  16. AMANTADINE HYDROCHLORIDE [Concomitant]
     Active Substance: AMANTADINE HYDROCHLORIDE
     Route: 048
     Dates: start: 20200721
  17. AMPYRA [Concomitant]
     Active Substance: DALFAMPRIDINE
     Route: 048
     Dates: start: 20200721
  18. TRILEPTAL [Concomitant]
     Active Substance: OXCARBAZEPINE
  19. MAGNESIUM OXIDE [Concomitant]
     Active Substance: MAGNESIUM OXIDE
     Dosage: DAILY
  20. DOK [Concomitant]
     Active Substance: DOCUSATE SODIUM
  21. ZINC SULFATE [Concomitant]
     Active Substance: ZINC SULFATE
     Dosage: DAILY
  22. OSCAL [Concomitant]
     Active Substance: CALCIUM CARBONATE
  23. FLONASE [Concomitant]
     Active Substance: FLUTICASONE PROPIONATE
     Dosage: 50 MCG AS NEEDED

REACTIONS (7)
  - Blindness transient [Recovered/Resolved]
  - Multiple sclerosis [Not Recovered/Not Resolved]
  - Multiple sclerosis relapse [Not Recovered/Not Resolved]
  - COVID-19 [Recovering/Resolving]
  - Visual field defect [Not Recovered/Not Resolved]
  - Dyslexia [Unknown]
  - COVID-19 [Unknown]

NARRATIVE: CASE EVENT DATE: 20210121
